FAERS Safety Report 5937511-3 (Version None)
Quarter: 2008Q4

REPORT INFORMATION
  Report Type: 
  Country: None (occurrence: None)
  Receive Date: 20081031
  Receipt Date: 20081022
  Transmission Date: 20090506
  Serious: Yes (Hospitalization, Other)
  Sender: FDA-Public Use
  Company Number: US-ABBOTT-08P-163-0461876-00

PATIENT
  Sex: Male
  Weight: 102.15 kg

DRUGS (19)
  1. HYDROCODONE BITARTRATE [Suspect]
     Indication: DRUG USE FOR UNKNOWN INDICATION
     Route: 048
     Dates: end: 20030708
  2. VICOPROFEN [Suspect]
     Indication: BREAKTHROUGH PAIN
     Dates: start: 20010913, end: 20030201
  3. FENTANYL CITRATE [Suspect]
     Indication: ARTHRALGIA
     Route: 002
     Dates: start: 20020116, end: 20020301
  4. FENTANYL CITRATE [Suspect]
     Route: 002
     Dates: start: 20021122, end: 20030314
  5. FENTANYL CITRATE [Suspect]
     Dosage: USING 3 TO 9 LOZENGES
     Dates: start: 20030315, end: 20030708
  6. FENTANYL CITRATE [Suspect]
     Route: 002
     Dates: start: 20060209, end: 20060312
  7. FENTANYL CITRATE [Suspect]
     Route: 002
     Dates: start: 20060313
  8. NORGESIC [Suspect]
     Indication: DRUG USE FOR UNKNOWN INDICATION
     Route: 062
     Dates: start: 20010716, end: 20010813
  9. NORGESIC [Suspect]
     Route: 062
     Dates: start: 20010814, end: 20020116
  10. NORGESIC [Suspect]
     Route: 062
     Dates: start: 20020130, end: 20020818
  11. NORGESIC [Suspect]
     Route: 062
     Dates: start: 20020819, end: 20020916
  12. NORGESIC [Suspect]
     Route: 062
     Dates: start: 20020917, end: 20030708
  13. VICODIN [Suspect]
     Indication: DRUG USE FOR UNKNOWN INDICATION
     Dosage: 10 MG HYDROCODONE/325MG ACETAMINOPHEN
     Route: 048
     Dates: start: 20030314, end: 20030708
  14. TRAMADOL HYDROCHLORIDE [Suspect]
     Indication: DRUG USE FOR UNKNOWN INDICATION
     Dates: start: 20010611, end: 20020130
  15. GABAPENTIN [Suspect]
     Indication: DRUG USE FOR UNKNOWN INDICATION
     Dosage: ESCALATING DOSE
     Dates: start: 20010611, end: 20010912
  16. GABAPENTIN [Suspect]
     Dates: start: 20010913, end: 20030101
  17. ZOLPIDEM TARTRATE [Concomitant]
     Indication: DRUG USE FOR UNKNOWN INDICATION
  18. LORAZEPAM [Concomitant]
     Indication: DRUG USE FOR UNKNOWN INDICATION
  19. VENLAFAXINE HCL [Concomitant]
     Indication: DRUG USE FOR UNKNOWN INDICATION

REACTIONS (12)
  - COGNITIVE DISORDER [None]
  - COMPLEX REGIONAL PAIN SYNDROME [None]
  - DEPRESSION [None]
  - DRUG DEPENDENCE [None]
  - FATIGUE [None]
  - HALLUCINATION, AUDITORY [None]
  - INSOMNIA [None]
  - NEUROPATHY PERIPHERAL [None]
  - OVERDOSE [None]
  - SOMNOLENCE [None]
  - TOOTH DISORDER [None]
  - TOOTH LOSS [None]
